FAERS Safety Report 12069274 (Version 9)
Quarter: 2017Q4

REPORT INFORMATION
  Report Type: Report from Study
  Country: JP (occurrence: JP)
  Receive Date: 20160211
  Receipt Date: 20171107
  Transmission Date: 20180320
  Serious: Yes (Hospitalization, Other)
  Sender: FDA-Public Use
  Company Number: JP-ACTELION-A-CH2016-131060

PATIENT
  Age: 12 Year
  Sex: Female

DRUGS (21)
  1. OPSUMIT [Suspect]
     Active Substance: MACITENTAN
     Indication: PULMONARY ARTERIAL HYPERTENSION
     Dosage: 10 G, QD
     Route: 048
     Dates: start: 20150714
  2. FLOLAN [Suspect]
     Active Substance: EPOPROSTENOL SODIUM
     Indication: PULMONARY ARTERIAL HYPERTENSION
     Dosage: 0~78NG/KG/MIN
     Route: 042
     Dates: start: 20150728, end: 20160330
  3. EPOPROSTENOL ACT [Suspect]
     Active Substance: EPOPROSTENOL
     Dosage: 58 NG/KG, PER MIN
     Route: 042
     Dates: start: 20151125, end: 20151225
  4. EPOPROSTENOL ACT [Suspect]
     Active Substance: EPOPROSTENOL
     Dosage: 73 NG/KG, PER MIN
     Route: 042
     Dates: start: 201603
  5. TREPROSTINIL [Suspect]
     Active Substance: TREPROSTINIL
     Indication: PULMONARY ARTERIAL HYPERTENSION
     Dosage: 78 NG/KG, PER MIN
     Route: 042
     Dates: start: 20160331
  6. ALENDRONATE [Concomitant]
     Active Substance: ALENDRONATE SODIUM
  7. EPOPROSTENOL ACT [Suspect]
     Active Substance: EPOPROSTENOL
     Dosage: 29 NG/KG, PER MIN
     Route: 042
     Dates: start: 20150825
  8. EPOPROSTENOL ACT [Suspect]
     Active Substance: EPOPROSTENOL
     Dosage: 48 NG/KG, PER MIN
     Route: 042
     Dates: start: 20151025, end: 20151125
  9. TREPROSTINIL [Suspect]
     Active Substance: TREPROSTINIL
     Dosage: UNK
     Route: 042
     Dates: start: 20170316
  10. RIOCIGUAT [Concomitant]
     Active Substance: RIOCIGUAT
     Indication: PRODUCT USED FOR UNKNOWN INDICATION
  11. EPOPROSTENOL ACT [Suspect]
     Active Substance: EPOPROSTENOL
     Dosage: 72 NG/KG, PER MIN
     Route: 042
     Dates: start: 201603, end: 201603
  12. EPOPROSTENOL ACT [Suspect]
     Active Substance: EPOPROSTENOL
     Dosage: 78 NG/KG, PER MIN
     Route: 042
     Dates: end: 20160330
  13. MAGNESIUM OXIDE. [Concomitant]
     Active Substance: MAGNESIUM OXIDE
     Indication: PRODUCT USED FOR UNKNOWN INDICATION
  14. EPOPROSTENOL ACT [Suspect]
     Active Substance: EPOPROSTENOL
     Dosage: 38 NG/KG, PER MIN
     Route: 042
     Dates: start: 20150925, end: 20151025
  15. EPOPROSTENOL ACT [Suspect]
     Active Substance: EPOPROSTENOL
     Dosage: 66 NG/KG, PER MIN
     Route: 042
     Dates: start: 20160125, end: 20160225
  16. EPOPROSTENOL ACT [Suspect]
     Active Substance: EPOPROSTENOL
     Dosage: 71 NG/KG, PER MIN
     Route: 042
     Dates: start: 20160225
  17. TAKECAB [Concomitant]
     Active Substance: VONOPRAZAN FUMURATE
  18. EPOPROSTENOL ACT [Suspect]
     Active Substance: EPOPROSTENOL
     Indication: PULMONARY ARTERIAL HYPERTENSION
     Dosage: 32 NG/KG, PER MIN
     Route: 042
     Dates: start: 201508
  19. EPOPROSTENOL ACT [Suspect]
     Active Substance: EPOPROSTENOL
     Dosage: 68 NG/KG, PER MIN
     Route: 042
     Dates: start: 20151225, end: 20160125
  20. OXYGEN. [Concomitant]
     Active Substance: OXYGEN
  21. EPOPROSTENOL ACT [Suspect]
     Active Substance: EPOPROSTENOL
     Dosage: 75 NG/KG, PER MIN
     Route: 042
     Dates: start: 20160331, end: 20160331

REACTIONS (10)
  - Haemoglobin decreased [Recovering/Resolving]
  - Diarrhoea [Recovered/Resolved]
  - Platelet count decreased [Recovering/Resolving]
  - Anaemia [Recovering/Resolving]
  - Transfusion [Unknown]
  - Thrombocytopenia [Recovering/Resolving]
  - Enterocolitis viral [Recovered/Resolved]
  - Pulmonary alveolar haemorrhage [Recovered/Resolved]
  - Ileus paralytic [Recovered/Resolved]
  - Uterine haemorrhage [Recovered/Resolved]

NARRATIVE: CASE EVENT DATE: 20150729
